FAERS Safety Report 10071070 (Version 1)
Quarter: 2014Q2

REPORT INFORMATION
  Report Type: Spontaneous
  Country: JP (occurrence: JP)
  Receive Date: 20140410
  Receipt Date: 20140410
  Transmission Date: 20141212
  Serious: Yes (Death, Other)
  Sender: FDA-Public Use
  Company Number: JP-ELI_LILLY_AND_COMPANY-JP201404001377

PATIENT
  Age: 63 Year
  Sex: Male

DRUGS (2)
  1. ALIMTA [Suspect]
     Indication: SQUAMOUS CELL CARCINOMA OF LUNG
     Route: 042
  2. CISPLATIN [Concomitant]
     Indication: SQUAMOUS CELL CARCINOMA OF LUNG

REACTIONS (3)
  - Condition aggravated [Fatal]
  - Respiratory failure [Fatal]
  - Gastric ulcer haemorrhage [Unknown]
